FAERS Safety Report 5985355-9 (Version None)
Quarter: 2008Q4

REPORT INFORMATION
  Report Type: 
  Country: None (occurrence: None)
  Receive Date: 20081208
  Receipt Date: 20080318
  Transmission Date: 20090506
  Serious: No
  Sender: FDA-Public Use
  Company Number: US-AMGEN-KDL270259

PATIENT
  Sex: Male

DRUGS (1)
  1. ENBREL [Suspect]
     Indication: RHEUMATOID ARTHRITIS
     Route: 058
     Dates: start: 20080226

REACTIONS (6)
  - DRY EYE [None]
  - DRY MOUTH [None]
  - FEELING COLD [None]
  - INCREASED TENDENCY TO BRUISE [None]
  - SKIN TIGHTNESS [None]
  - THERAPEUTIC RESPONSE DELAYED [None]
